FAERS Safety Report 7906535-9 (Version None)
Quarter: 2011Q4

REPORT INFORMATION
  Report Type: 
  Country: None (occurrence: None)
  Receive Date: 20111110
  Receipt Date: 20111104
  Transmission Date: 20120403
  Serious: Yes (Other)
  Sender: FDA-Public Use
  Company Number: US-JNJFOC-20111103112

PATIENT
  Sex: Female
  Weight: 72.58 kg

DRUGS (2)
  1. FISH OIL [Concomitant]
     Indication: NUTRITIONAL SUPPORT
     Route: 048
     Dates: start: 20080101
  2. LEVAQUIN [Suspect]
     Indication: SINUSITIS
     Route: 048
     Dates: start: 20100103, end: 20100112

REACTIONS (3)
  - DRUG HYPERSENSITIVITY [None]
  - MENISCUS LESION [None]
  - ASTHENIA [None]
